FAERS Safety Report 4615488-0 (Version None)
Quarter: 2005Q1

REPORT INFORMATION
  Report Type: 
  Country: None (occurrence: None)
  Receive Date: 20050317
  Receipt Date: 20050307
  Transmission Date: 20050727
  Serious: Yes (Hospitalization)
  Sender: FDA-Public Use
  Company Number: 2005042117

PATIENT
  Sex: Female

DRUGS (5)
  1. VIRACEPT [Suspect]
     Indication: HIV INFECTION
     Dosage: ORAL
     Route: 048
  2. DIDANOSINE [Suspect]
     Indication: HIV INFECTION
  3. ZIDOVUDINE [Suspect]
     Indication: HIV INFECTION
  4. TRANQUITAL (CRATAEGUS, VALERIANA OFFICINALIS ROOT) [Suspect]
     Indication: ILL-DEFINED DISORDER
  5. AMOXICILLIN [Concomitant]

REACTIONS (5)
  - CAESAREAN SECTION [None]
  - DRUG EXPOSURE DURING PREGNANCY [None]
  - PREMATURE BABY [None]
  - STREPTOCOCCAL INFECTION [None]
  - VAGINAL INFECTION [None]
